FAERS Safety Report 7796826-7 (Version None)
Quarter: 2011Q4

REPORT INFORMATION
  Report Type: 
  Country: None (occurrence: None)
  Receive Date: 20111005
  Receipt Date: 20110923
  Transmission Date: 20120403
  Serious: Yes (Hospitalization)
  Sender: FDA-Public Use
  Company Number: PHHO2011US16328

PATIENT
  Sex: Male
  Weight: 86.621 kg

DRUGS (6)
  1. BLINDED NVA237 [Suspect]
     Indication: CHRONIC OBSTRUCTIVE PULMONARY DISEASE
     Dosage: DOUBLE BLINDED
     Dates: start: 20101117, end: 20110923
  2. OXYGEN [Concomitant]
     Indication: SLEEP APNOEA SYNDROME
     Dosage: 2 LPM, QHS
     Dates: start: 20080314
  3. BLINDED NO TREATMENT RECEIVED [Suspect]
     Indication: CHRONIC OBSTRUCTIVE PULMONARY DISEASE
     Dosage: DOUBLE BLINDED
     Dates: start: 20101117, end: 20110923
  4. BLINDED QVA149 [Suspect]
     Indication: CHRONIC OBSTRUCTIVE PULMONARY DISEASE
     Dosage: DOUBLE BLINDED
     Dates: start: 20101117, end: 20110923
  5. TRAMADOL HCL [Suspect]
     Indication: BACK PAIN
     Dosage: 50 MG, PRN
     Route: 048
     Dates: start: 20110710
  6. BLINDED TIOTROPIUM [Suspect]
     Indication: CHRONIC OBSTRUCTIVE PULMONARY DISEASE
     Dosage: DOUBLE BLINDED
     Dates: start: 20101117, end: 20110923

REACTIONS (3)
  - CONCOMITANT DISEASE PROGRESSION [None]
  - BACK PAIN [None]
  - POST PROCEDURAL COMPLICATION [None]
